FAERS Safety Report 8050187-7 (Version None)
Quarter: 2012Q1

REPORT INFORMATION
  Report Type: 
  Country: None (occurrence: None)
  Receive Date: 20120111
  Receipt Date: 20120105
  Transmission Date: 20120608
  Serious: Yes (Hospitalization)
  Sender: FDA-Public Use
  Company Number: 2011SP022677

PATIENT
  Age: 30 Year
  Sex: Female
  Weight: 81.6475 kg

DRUGS (1)
  1. NUVARING [Suspect]
     Indication: CONTRACEPTION
     Dates: start: 20051101, end: 20090601

REACTIONS (12)
  - HYPERCOAGULATION [None]
  - ABDOMINOPLASTY [None]
  - INTERNATIONAL NORMALISED RATIO DECREASED [None]
  - LEUKOCYTOSIS [None]
  - ACTIVATED PARTIAL THROMBOPLASTIN TIME PROLONGED [None]
  - PULMONARY EMBOLISM [None]
  - TOOTH ABSCESS [None]
  - DEEP VEIN THROMBOSIS [None]
  - TACHYCARDIA [None]
  - PULMONARY INFARCTION [None]
  - ROAD TRAFFIC ACCIDENT [None]
  - SINUSITIS [None]
